FAERS Safety Report 11087166 (Version 2)
Quarter: 2015Q2

REPORT INFORMATION
  Report Type: Spontaneous
  Country: US (occurrence: US)
  Receive Date: 20150504
  Receipt Date: 20150608
  Transmission Date: 20150821
  Serious: No
  Sender: FDA-Public Use
  Company Number: US-PFIZER INC-2015147590

PATIENT
  Age: 64 Year
  Sex: Female
  Weight: 59 kg

DRUGS (1)
  1. PRISTIQ EXTENDED RELEASE [Suspect]
     Active Substance: DESVENLAFAXINE SUCCINATE
     Indication: MAJOR DEPRESSION
     Dosage: 50 MG, 2X/DAY (ONE IN MORNING AND ONE IN EVENING)
     Route: 048
     Dates: end: 201504

REACTIONS (8)
  - Mobility decreased [Unknown]
  - Dizziness [Unknown]
  - Drug withdrawal syndrome [Unknown]
  - Abdominal discomfort [Unknown]
  - Sleep disorder [Unknown]
  - Hot flush [Unknown]
  - Feeling cold [Unknown]
  - Disorientation [Unknown]

NARRATIVE: CASE EVENT DATE: 201504
